FAERS Safety Report 9648596 (Version 1)
Quarter: 2013Q4

REPORT INFORMATION
  Report Type: Spontaneous
  Country: US (occurrence: US)
  Receive Date: 20131028
  Receipt Date: 20131028
  Transmission Date: 20140711
  Serious: Yes (Other)
  Sender: FDA-Public Use
  Company Number: US-BAYER-2013-127765

PATIENT
  Age: 66 Year
  Sex: Female

DRUGS (4)
  1. CHOLECALCIFEROL [Suspect]
     Indication: HYPOCALCAEMIA
  2. CALCIUM CITRATE [Suspect]
     Indication: HYPOCALCAEMIA
  3. ACETYLSALICYLIC ACID+CALCIUMCARBONATE [Suspect]
     Indication: HYPOCALCAEMIA
  4. CALCITRIOL [Concomitant]
     Indication: HYPOCALCAEMIA
     Dosage: 0.25 ?G, QD
     Route: 048

REACTIONS (1)
  - Calciphylaxis [Recovered/Resolved]
